FAERS Safety Report 10176365 (Version 3)
Quarter: 2014Q2

REPORT INFORMATION
  Report Type: Spontaneous
  Country: AU (occurrence: AU)
  Receive Date: 20140516
  Receipt Date: 20140624
  Transmission Date: 20141212
  Serious: Yes (Other)
  Sender: FDA-Public Use
  Company Number: AU-INCYTE CORPORATION-2014IN001289

PATIENT
  Sex: 0

DRUGS (3)
  1. JAKAVI [Suspect]
     Dosage: UNK UNK, UNK
     Route: 065
  2. JAKAVI [Suspect]
     Dosage: UNK UNK, UNK
     Route: 065
  3. JAKAVI [Suspect]
     Dosage: UNK UNK, UNK
     Route: 065

REACTIONS (3)
  - Pleural effusion [Unknown]
  - Disease progression [Unknown]
  - Platelet count decreased [Recovering/Resolving]
